FAERS Safety Report 9158493 (Version 1)
Quarter: 2013Q1

REPORT INFORMATION
  Report Type: Spontaneous
  Country: US (occurrence: US)
  Receive Date: 20130312
  Receipt Date: 20130312
  Transmission Date: 20140127
  Serious: Yes (Hospitalization, Other)
  Sender: FDA-Public Use
  Company Number: US-ABBOTT-13P-163-1060590-00

PATIENT
  Age: 79 None
  Sex: Male
  Weight: 62.65 kg

DRUGS (10)
  1. CREON [Suspect]
     Indication: PANCREATIC INSUFFICIENCY
     Dosage: 7 PILLS A DAY WITH MEALS
  2. LORAZEPAM [Suspect]
     Indication: AGGRESSION
     Dates: start: 201210, end: 201210
  3. ARICEPT [Concomitant]
     Indication: DEMENTIA ALZHEIMER^S TYPE
  4. NIMENDA [Concomitant]
     Indication: DEMENTIA ALZHEIMER^S TYPE
  5. BABY ASPIRIN [Concomitant]
     Indication: PRODUCT USED FOR UNKNOWN INDICATION
  6. OMEPRAZOLE [Concomitant]
     Indication: GASTRIC DISORDER
  7. METOPROLOL [Concomitant]
     Indication: HYPERTENSION
  8. ISOSORBIDE [Concomitant]
     Indication: HYPERTENSION
  9. PREVACID [Concomitant]
     Indication: PRODUCT USED FOR UNKNOWN INDICATION
  10. PERCOCET [Concomitant]
     Indication: PRODUCT USED FOR UNKNOWN INDICATION

REACTIONS (12)
  - Road traffic accident [Recovered/Resolved]
  - Thoracic vertebral fracture [Recovered/Resolved]
  - Rotator cuff syndrome [Recovered/Resolved]
  - Fall [Recovered/Resolved]
  - Pelvic fracture [Recovered/Resolved]
  - Rib fracture [Recovering/Resolving]
  - Aspiration [Recovering/Resolving]
  - Pneumonia [Recovering/Resolving]
  - Aphagia [Recovering/Resolving]
  - Back pain [Recovered/Resolved]
  - Abdominal pain [Recovered/Resolved]
  - Aggression [Recovered/Resolved]
